FAERS Safety Report 4697870-9 (Version None)
Quarter: 2005Q2

REPORT INFORMATION
  Report Type: 
  Country: None (occurrence: None)
  Receive Date: 20050623
  Receipt Date: 20050616
  Transmission Date: 20051028
  Serious: Yes (Other)
  Sender: FDA-Public Use
  Company Number: PHEH2005US06830

PATIENT
  Age: 53 Year
  Sex: Female

DRUGS (3)
  1. ZELNORM [Suspect]
     Indication: CONSTIPATION
     Dosage: 6 MG, ONCE/SINGLE
     Route: 048
     Dates: start: 20050501, end: 20050501
  2. ZELNORM [Suspect]
     Dosage: 6 MG, PRN
     Route: 048
  3. ZELNORM [Suspect]
     Dosage: 6 MG, QD
     Route: 048
     Dates: start: 20050614

REACTIONS (5)
  - ASTHENIA [None]
  - CONSTIPATION [None]
  - DIARRHOEA [None]
  - DRUG INEFFECTIVE [None]
  - PAIN IN EXTREMITY [None]
